FAERS Safety Report 6031123-1 (Version None)
Quarter: 2008Q4

REPORT INFORMATION
  Report Type: 
  Country: None (occurrence: None)
  Receive Date: 20081222
  Receipt Date: 20081014
  Transmission Date: 20090506
  Serious: No
  Sender: FDA-Public Use
  Company Number: US-WYE-H06391608

PATIENT
  Age: 53 Year
  Sex: Female

DRUGS (4)
  1. PRISTIQ [Suspect]
     Indication: DEPRESSION
     Dosage: 50 MG 1X PER 1 DAY, ORAL
     Route: 048
     Dates: start: 20081001
  2. PRISTIQ [Suspect]
     Indication: NEURALGIA
     Dosage: 50 MG 1X PER 1 DAY, ORAL
     Route: 048
     Dates: start: 20081001
  3. DURAGESIC-100 [Concomitant]
  4. LYRICA [Concomitant]

REACTIONS (7)
  - ABNORMAL DREAMS [None]
  - AMNESIA [None]
  - HALLUCINATION [None]
  - INSOMNIA [None]
  - RESTLESSNESS [None]
  - SOMNAMBULISM [None]
  - TREMOR [None]
